FAERS Safety Report 17677206 (Version 2)
Quarter: 2020Q2

REPORT INFORMATION
  Report Type: Spontaneous
  Country: US (occurrence: US)
  Receive Date: 20200416
  Receipt Date: 20200610
  Transmission Date: 20200714
  Serious: Yes (Other)
  Sender: FDA-Public Use
  Company Number: US-NAPPMUNDI-USA-2020-0151759

PATIENT
  Age: 59 Year
  Sex: Male
  Weight: 98.87 kg

DRUGS (3)
  1. OXYCONTIN [Suspect]
     Active Substance: OXYCODONE HYDROCHLORIDE
     Dosage: 80 MG, TID
     Route: 048
  2. OXYCONTIN [Suspect]
     Active Substance: OXYCODONE HYDROCHLORIDE
     Indication: PAIN
     Dosage: 80 MG, QID
     Route: 048
     Dates: start: 1989
  3. OXYCONTIN [Suspect]
     Active Substance: OXYCODONE HYDROCHLORIDE
     Dosage: 80 MG, BID
     Route: 048
     Dates: start: 201911

REACTIONS (30)
  - Suicidal ideation [Unknown]
  - Haemorrhage [Unknown]
  - Therapeutic response shortened [Unknown]
  - Seizure [Not Recovered/Not Resolved]
  - Insomnia [Unknown]
  - Pain [Unknown]
  - Hernia [Unknown]
  - Tinnitus [Unknown]
  - Loss of personal independence in daily activities [Unknown]
  - Gastrointestinal disorder [Not Recovered/Not Resolved]
  - Nausea [Unknown]
  - Head injury [Unknown]
  - Hypokinesia [Unknown]
  - Vomiting [Not Recovered/Not Resolved]
  - Off label use [Recovered/Resolved]
  - Feeling abnormal [Unknown]
  - Road traffic accident [Unknown]
  - Panic attack [Not Recovered/Not Resolved]
  - Pain in extremity [Unknown]
  - Emotional distress [Not Recovered/Not Resolved]
  - Asthenia [Not Recovered/Not Resolved]
  - Drug dependence [Not Recovered/Not Resolved]
  - Near death experience [Unknown]
  - Back pain [Unknown]
  - Head discomfort [Unknown]
  - Feeling cold [Unknown]
  - Malaise [Not Recovered/Not Resolved]
  - Apathy [Unknown]
  - Swelling [Unknown]
  - Hot flush [Unknown]

NARRATIVE: CASE EVENT DATE: 201911
